FAERS Safety Report 8807172 (Version 1)
Quarter: 2012Q4

REPORT INFORMATION
  Report Type: 
  Country: US (occurrence: US)
  Receive Date: 20120925
  Receipt Date: 20120925
  Transmission Date: 20130627
  Serious: Yes (Other)
  Sender: FDA-Public Use
  Company Number: US-TEVA-360624USA

PATIENT
  Sex: Male

DRUGS (1)
  1. QVAR [Suspect]
     Route: 048
     Dates: end: 20120917

REACTIONS (3)
  - Pharyngeal oedema [Unknown]
  - Pruritus [Unknown]
  - Drug ineffective [Unknown]
